FAERS Safety Report 15523368 (Version 1)
Quarter: 2018Q4

REPORT INFORMATION
  Report Type: Spontaneous
  Country: US (occurrence: US)
  Receive Date: 20181015
  Receipt Date: 20181015
  Transmission Date: 20190205
  Serious: Yes (Other)
  Sender: FDA-Public Use
  Company Number: None

PATIENT
  Age: 45 Year
  Sex: Male
  Weight: 83.25 kg

DRUGS (3)
  1. HYDROCHLOROTHIAZIDE. [Suspect]
     Active Substance: HYDROCHLOROTHIAZIDE
     Indication: HYPERTENSION
     Dosage: ?          QUANTITY:1 DF DOSAGE FORM;?
     Route: 048
     Dates: start: 20180129, end: 20180228
  2. TENOFOVIR DISOP FUM [Concomitant]
  3. MEN^S ONE A DAY VITAMIN [Concomitant]

REACTIONS (8)
  - Dyspnoea [None]
  - Tongue dry [None]
  - Recalled product administered [None]
  - Drug ineffective [None]
  - Pollakiuria [None]
  - Extrasystoles [None]
  - Feeling abnormal [None]
  - Headache [None]
